FAERS Safety Report 8649258 (Version 5)
Quarter: 2015Q3

REPORT INFORMATION
  Report Type: Spontaneous
  Country: US (occurrence: None)
  Receive Date: 20120621
  Receipt Date: 20150910
  Transmission Date: 20151125
  Serious: Yes (Other)
  Sender: FDA-Public Use
  Company Number: ADR-2010-9092

PATIENT
  Age: 23 Year
  Sex: Male

DRUGS (1)
  1. LIORESAL [Suspect]
     Active Substance: BACLOFEN
     Indication: MUSCLE SPASTICITY

REACTIONS (13)
  - Pruritus [None]
  - Eye pruritus [None]
  - Abasia [None]
  - Sexual dysfunction [None]
  - Back pain [None]
  - Muscle tightness [None]
  - Ocular hyperaemia [None]
  - Therapeutic response decreased [None]
  - Hypoaesthesia [None]
  - Hypotonia [None]
  - Overdose [None]
  - Scar [None]
  - Spinal pain [None]
